FAERS Safety Report 17920488 (Version 4)
Quarter: 2020Q2

REPORT INFORMATION
  Report Type: Spontaneous
  Country: US (occurrence: US)
  Receive Date: 20200621
  Receipt Date: 20200629
  Transmission Date: 20200714
  Serious: No
  Sender: FDA-Public Use
  Company Number: US-GLAXOSMITHKLINE-US2020AMR100063

PATIENT
  Sex: Female

DRUGS (1)
  1. ZEJULA [Suspect]
     Active Substance: NIRAPARIB
     Indication: OVARIAN CANCER
     Dosage: 200 MG, QD
     Dates: start: 20200601

REACTIONS (10)
  - White blood cell count decreased [Unknown]
  - Tremor [Not Recovered/Not Resolved]
  - Nausea [Unknown]
  - Underdose [Unknown]
  - Asthenia [Not Recovered/Not Resolved]
  - Discomfort [Not Recovered/Not Resolved]
  - Nervousness [Unknown]
  - Decreased appetite [Unknown]
  - Musculoskeletal discomfort [Unknown]
  - Bone pain [Not Recovered/Not Resolved]
